FAERS Safety Report 20710039 (Version 1)
Quarter: 2022Q2

REPORT INFORMATION
  Report Type: Spontaneous
  Country: US (occurrence: US)
  Receive Date: 20220414
  Receipt Date: 20220414
  Transmission Date: 20220720
  Serious: No
  Sender: FDA-Public Use
  Company Number: US-BAYER-2022A050651

PATIENT
  Sex: Male

DRUGS (1)
  1. CLARITIN-D NOS [Suspect]
     Active Substance: LORATADINE\PSEUDOEPHEDRINE SULFATE
     Dosage: 1 DF
     Route: 048
     Dates: start: 20220407, end: 20220407

REACTIONS (2)
  - Expired product administered [None]
  - Sneezing [Recovering/Resolving]

NARRATIVE: CASE EVENT DATE: 20220407
